FAERS Safety Report 16053477 (Version 3)
Quarter: 2019Q2

REPORT INFORMATION
  Report Type: Spontaneous
  Country: US (occurrence: US)
  Receive Date: 20190308
  Receipt Date: 20190508
  Transmission Date: 20190711
  Serious: No
  Sender: FDA-Public Use
  Company Number: US-PFIZER INC-2018344208

PATIENT
  Age: 61 Year
  Sex: Female
  Weight: 91 kg

DRUGS (10)
  1. CARVEDILOL. [Concomitant]
     Active Substance: CARVEDILOL
     Dosage: UNK
  2. XANI [Concomitant]
     Indication: PSYCHIATRIC SYMPTOM
  3. IBRANCE [Suspect]
     Active Substance: PALBOCICLIB
     Indication: BREAST CANCER FEMALE
     Dosage: 150 MG, CYCLIC (DAILY, FOR 21 DAYS AND OFF 7 DAYS)
     Dates: start: 2017
  4. IBRANCE [Suspect]
     Active Substance: PALBOCICLIB
     Dosage: 100 MG, CYCLIC (DAILY, FOR 21 DAYS AND OFF 7 DAYS)
     Dates: start: 2018
  5. INSULIN [Concomitant]
     Active Substance: INSULIN NOS
     Dosage: 20 IU, DAILY
  6. CLONIDINE. [Concomitant]
     Active Substance: CLONIDINE
     Dosage: UNK
  7. XANI [Concomitant]
     Indication: PANIC DISORDER
     Dosage: UNK
  8. ZETIA [Concomitant]
     Active Substance: EZETIMIBE
     Dosage: UNK
  9. ASPIRIN. [Concomitant]
     Active Substance: ASPIRIN
     Dosage: 81 MG, UNK
  10. CHLORAZINE [Concomitant]
     Dosage: UNK

REACTIONS (8)
  - Weight fluctuation [Unknown]
  - Rash [Recovered/Resolved]
  - Gait disturbance [Not Recovered/Not Resolved]
  - Malaise [Not Recovered/Not Resolved]
  - Tremor [Not Recovered/Not Resolved]
  - Renal disorder [Unknown]
  - Burning sensation [Recovered/Resolved]
  - Skin exfoliation [Recovered/Resolved]

NARRATIVE: CASE EVENT DATE: 2017
